FAERS Safety Report 5802559-6 (Version None)
Quarter: 2008Q3

REPORT INFORMATION
  Report Type: 
  Country: None (occurrence: None)
  Receive Date: 20080708
  Receipt Date: 20080626
  Transmission Date: 20090109
  Serious: Yes (Other)
  Sender: FDA-Public Use
  Company Number: PHHY2008JP12426

PATIENT

DRUGS (1)
  1. NITRODERM [Suspect]
     Dosage: 25 MG/DAY
     Route: 062

REACTIONS (1)
  - BRADYCARDIA [None]
